FAERS Safety Report 9824152 (Version 2)
Quarter: 2014Q1

REPORT INFORMATION
  Report Type: Spontaneous
  Country: US (occurrence: US)
  Receive Date: 20140116
  Receipt Date: 20140206
  Transmission Date: 20141002
  Serious: Yes (Hospitalization)
  Sender: FDA-Public Use
  Company Number: US-GLAXOSMITHKLINE-A1056176A

PATIENT
  Age: 82 Year
  Sex: Female

DRUGS (2)
  1. ADVAIR [Suspect]
     Indication: CHRONIC OBSTRUCTIVE PULMONARY DISEASE
     Dosage: 1PUFF TWICE PER DAY
     Route: 055
  2. CONCURRENT MEDICATIONS [Concomitant]

REACTIONS (5)
  - Open fracture [Unknown]
  - Pericardial effusion [Unknown]
  - Intestinal resection [Unknown]
  - Fall [Unknown]
  - Dyspnoea [Unknown]
